FAERS Safety Report 14970826 (Version 2)
Quarter: 2018Q3

REPORT INFORMATION
  Report Type: Other
  Country: US (occurrence: US)
  Receive Date: 20180604
  Receipt Date: 20180710
  Transmission Date: 20181010
  Serious: No
  Sender: FDA-Public Use
  Company Number: US-MERZ NORTH AMERICA, INC.-18MRZ-00290

PATIENT
  Sex: Female

DRUGS (1)
  1. ASCLERA [Suspect]
     Active Substance: POLIDOCANOL
     Indication: PRODUCT USED FOR UNKNOWN INDICATION
     Dosage: 3 PATIENTS RECEIVED 2ML?2 PATIENTS RECEIVED 1 ML
     Route: 042

REACTIONS (4)
  - Swelling [Unknown]
  - Pain [Unknown]
  - Erythema [Unknown]
  - Skin discolouration [Unknown]
